FAERS Safety Report 9209246 (Version 1)
Quarter: 2013Q2

REPORT INFORMATION
  Report Type: Spontaneous
  Country: GB (occurrence: GB)
  Receive Date: 20130404
  Receipt Date: 20130404
  Transmission Date: 20140414
  Serious: Yes (Hospitalization)
  Sender: FDA-Public Use
  Company Number: GB-BANPHARM-20131113

PATIENT
  Age: 7 Year
  Sex: Female
  Weight: 30 kg

DRUGS (5)
  1. IBUPROFEN UNKNOWN PRODUCT [Suspect]
     Indication: ABDOMINAL PAIN
     Route: 048
     Dates: start: 20041204, end: 20041204
  2. DICLOFENAC [Suspect]
     Indication: ABDOMINAL PAIN
     Route: 054
     Dates: start: 20041202, end: 20041202
  3. CEFTRIAXONE [Concomitant]
     Route: 042
     Dates: start: 20041203, end: 20041203
  4. ONDANSETRON [Concomitant]
     Route: 042
     Dates: start: 20041203, end: 20041203
  5. PARACETAMOL [Concomitant]
     Indication: PYREXIA
     Route: 048
     Dates: start: 20041202, end: 20041204

REACTIONS (2)
  - Renal failure acute [Recovered/Resolved]
  - Renal tubular necrosis [Recovered/Resolved]
